FAERS Safety Report 10366031 (Version 1)
Quarter: 2014Q3

REPORT INFORMATION
  Report Type: Spontaneous
  Country: US (occurrence: None)
  Receive Date: 20140804
  Receipt Date: 20140804
  Transmission Date: 20150326
  Serious: No
  Sender: FDA-Public Use
  Company Number: None

PATIENT
  Age: 28 Year
  Sex: Female
  Weight: 55.34 kg

DRUGS (1)
  1. METRONIDAZOLE 500 MG   WATSON [Suspect]
     Active Substance: METRONIDAZOLE
     Indication: BACTERIAL VAGINOSIS
     Dosage: 1 PILL TWICE DAILY TAKEN BY MOUTH
     Route: 048
     Dates: start: 20140726, end: 20140801

REACTIONS (8)
  - Dizziness [None]
  - Dysstasia [None]
  - Labile blood pressure [None]
  - Apparent death [None]
  - Fear [None]
  - Feeling abnormal [None]
  - Migraine [None]
  - Nausea [None]

NARRATIVE: CASE EVENT DATE: 20140801
